FAERS Safety Report 10367231 (Version 1)
Quarter: 2014Q3

REPORT INFORMATION
  Report Type: Spontaneous
  Country: US (occurrence: None)
  Receive Date: 20140805
  Receipt Date: 20140805
  Transmission Date: 20150326
  Serious: No
  Sender: FDA-Public Use
  Company Number: None

PATIENT
  Age: 76 Year
  Sex: Male
  Weight: 88.45 kg

DRUGS (1)
  1. FINASTERIDE. [Suspect]
     Active Substance: FINASTERIDE
     Indication: POLLAKIURIA
     Dosage: 1 PILL ONCE DAY TAKEN BY MOUTH
     Route: 048
     Dates: start: 20131107, end: 20140803

REACTIONS (3)
  - Semen volume decreased [None]
  - Dizziness [None]
  - Male sexual dysfunction [None]

NARRATIVE: CASE EVENT DATE: 20140803
